FAERS Safety Report 24049788 (Version 1)
Quarter: 2024Q3

REPORT INFORMATION
  Report Type: Spontaneous
  Country: AU (occurrence: AU)
  Receive Date: 20240704
  Receipt Date: 20240704
  Transmission Date: 20241017
  Serious: Yes (Other)
  Sender: ROCHE
  Company Number: AU-ROCHE-10000008610

PATIENT
  Sex: Male

DRUGS (1)
  1. OBINUTUZUMAB [Suspect]
     Active Substance: OBINUTUZUMAB
     Indication: Product used for unknown indication
     Route: 065

REACTIONS (5)
  - Dyspnoea [Unknown]
  - Hypotension [Unknown]
  - Nausea [Unknown]
  - Presyncope [Recovered/Resolved]
  - Unresponsive to stimuli [Recovered/Resolved]
